FAERS Safety Report 8358314-9 (Version None)
Quarter: 2012Q2

REPORT INFORMATION
  Report Type: 
  Country: None (occurrence: None)
  Receive Date: 20120514
  Receipt Date: 20110415
  Transmission Date: 20120825
  Serious: No
  Sender: FDA-Public Use
  Company Number: US-ALEXION-A201100534

PATIENT
  Sex: Female

DRUGS (9)
  1. ASCORBIC ACID [Concomitant]
     Dosage: 1000 MG QD
  2. SOLIRIS [Suspect]
     Dosage: 600 MG QW
     Route: 042
     Dates: start: 20090217
  3. SOTALOL HCL [Concomitant]
     Indication: ATRIAL FIBRILLATION
     Dosage: UNK BID
  4. MELOXICAM [Concomitant]
     Indication: ARTHRITIS
     Dosage: UNK QD
  5. SOLIRIS [Suspect]
     Dosage: 900 MG Q2W
     Dates: start: 20090324
  6. ALLOPURINOL [Concomitant]
     Indication: GOUT
     Dosage: UNK QD
  7. FOLIC ACID [Concomitant]
     Dosage: 3 MG QD
     Route: 048
  8. ASPIRIN [Concomitant]
     Dosage: 81 MG QD
  9. CALCIUM [Concomitant]
     Dosage: UNK QD

REACTIONS (1)
  - EYE INFECTION [None]
